FAERS Safety Report 9183026 (Version 1)
Quarter: 2013Q1

REPORT INFORMATION
  Report Type: Spontaneous
  Country: US (occurrence: US)
  Receive Date: 20130322
  Receipt Date: 20130322
  Transmission Date: 20140127
  Serious: No
  Sender: FDA-Public Use
  Company Number: US-BRISTOL-MYERS SQUIBB COMPANY-17012311

PATIENT
  Age: 58 Year
  Sex: Male

DRUGS (2)
  1. ERBITUX [Suspect]
     Indication: COLORECTAL CANCER METASTATIC
     Route: 042
     Dates: start: 20120910, end: 20120917
  2. IRINOTECAN [Concomitant]
     Dates: start: 20120910

REACTIONS (1)
  - Rash [Recovered/Resolved with Sequelae]
